FAERS Safety Report 7751952-3 (Version None)
Quarter: 2011Q3

REPORT INFORMATION
  Report Type: 
  Country: None (occurrence: None)
  Receive Date: 20110912
  Receipt Date: 20110829
  Transmission Date: 20111222
  Serious: Yes (Hospitalization)
  Sender: FDA-Public Use
  Company Number: 2011SA054232

PATIENT
  Age: 74 Year
  Sex: Male
  Weight: 71 kg

DRUGS (27)
  1. LASIX [Concomitant]
  2. COMPAZINE [Concomitant]
  3. KLOR-CON [Concomitant]
  4. TOPROL-XL [Concomitant]
  5. OMEGA-6 FATTY ACIDS [Concomitant]
  6. MARINOL [Concomitant]
  7. CARBOPLATIN [Suspect]
     Indication: LUNG SQUAMOUS CELL CARCINOMA STAGE IV
     Dosage: 1 DOSAGE FORM; EVERY CYCLE; INTRAVENOUS DRIP
     Route: 041
     Dates: start: 20110805, end: 20110805
  8. FENTANYL [Concomitant]
  9. GEMCITABINE [Suspect]
     Dosage: SEE IMAGE, INTRAVENOUS DRIP
     Route: 041
     Dates: start: 20110812, end: 20110812
  10. GEMCITABINE [Suspect]
     Dosage: SEE IMAGE, INTRAVENOUS DRIP
     Route: 041
     Dates: start: 20110805, end: 20110805
  11. AMBIEN [Concomitant]
  12. ALPHA LIPOIC ACID [Concomitant]
  13. NIASPAN [Concomitant]
  14. FENOFIBRATE [Concomitant]
  15. MULTIVITAMIN [Concomitant]
  16. ZOFRAN [Concomitant]
  17. LISINOPRIL [Concomitant]
  18. NITROGLYCERIN [Concomitant]
  19. ASPIRIN [Concomitant]
  20. XGEVA [Concomitant]
  21. NEUPOGEN [Concomitant]
  22. DIGOXIN [Concomitant]
  23. PLAVIX [Concomitant]
  24. VYTORIN [Concomitant]
  25. COENZYME Q10 [Concomitant]
  26. ALPRAZOLAM [Concomitant]
  27. ROXICET [Concomitant]

REACTIONS (8)
  - SENSATION OF HEAVINESS [None]
  - NEUTROPHIL COUNT DECREASED [None]
  - CONDUCTION DISORDER [None]
  - ASTHENIA [None]
  - CHEST PAIN [None]
  - ANAEMIA [None]
  - WHITE BLOOD CELL COUNT DECREASED [None]
  - THROMBOCYTOPENIA [None]
